FAERS Safety Report 23653183 (Version 2)
Quarter: 2024Q2

REPORT INFORMATION
  Report Type: Spontaneous
  Country: US (occurrence: US)
  Receive Date: 20240320
  Receipt Date: 20240416
  Transmission Date: 20240716
  Serious: Yes (Other)
  Sender: FDA-Public Use
  Company Number: US-PFIZER INC-PV202400037698

PATIENT
  Age: 62 Year
  Sex: Male
  Weight: 94.785 kg

DRUGS (1)
  1. XELJANZ XR [Suspect]
     Active Substance: TOFACITINIB CITRATE
     Dosage: UNK

REACTIONS (2)
  - Rotator cuff syndrome [Recovering/Resolving]
  - Tendon disorder [Recovering/Resolving]

NARRATIVE: CASE EVENT DATE: 20240311
